FAERS Safety Report 7192243-1 (Version None)
Quarter: 2010Q4

REPORT INFORMATION
  Report Type: 
  Country: None (occurrence: None)
  Receive Date: 20101223
  Receipt Date: 20101210
  Transmission Date: 20110411
  Serious: Yes (Hospitalization)
  Sender: FDA-Public Use
  Company Number: GXKR2010IT14091

PATIENT
  Sex: Female

DRUGS (2)
  1. FUROSEMIDE (NGX) [Suspect]
     Route: 065
  2. RAMIPRIL [Suspect]
     Route: 065

REACTIONS (3)
  - HYPERKALAEMIA [None]
  - OLIGURIA [None]
  - RENAL FAILURE ACUTE [None]
